FAERS Safety Report 7190055-6 (Version None)
Quarter: 2010Q4

REPORT INFORMATION
  Report Type: 
  Country: None (occurrence: None)
  Receive Date: 20101223
  Receipt Date: 20101214
  Transmission Date: 20110411
  Serious: Yes (Other)
  Sender: FDA-Public Use
  Company Number: US-JNJFOC-20101206275

PATIENT
  Sex: Female
  Weight: 111.59 kg

DRUGS (4)
  1. FENTANYL-100 [Suspect]
     Indication: BACK PAIN
     Dosage: NDC: 0781-7242-55
     Route: 062
  2. METHADONE [Suspect]
     Indication: PAIN
     Route: 048
  3. KLONOPIN [Concomitant]
     Indication: ANXIETY
     Route: 048
  4. ZOFRAN [Concomitant]
     Indication: NAUSEA
     Route: 060

REACTIONS (8)
  - ABDOMINAL DISCOMFORT [None]
  - ANXIETY [None]
  - DRUG INEFFECTIVE [None]
  - DRUG INTOLERANCE [None]
  - INSOMNIA [None]
  - KIDNEY INFECTION [None]
  - PRODUCT ADHESION ISSUE [None]
  - WITHDRAWAL SYNDROME [None]
